FAERS Safety Report 19303546 (Version 2)
Quarter: 2021Q2

REPORT INFORMATION
  Report Type: Spontaneous
  Country: US (occurrence: US)
  Receive Date: 20210525
  Receipt Date: 20210614
  Transmission Date: 20210717
  Serious: No
  Sender: FDA-Public Use
  Company Number: US-ORGANON-O2105USA001972

PATIENT
  Sex: Female

DRUGS (1)
  1. NEXPLANON [Suspect]
     Active Substance: ETONOGESTREL
     Dosage: 1 DOSAGE FORM (IMPLANT), THREE YEARS, LEFT UPPER ARM
     Route: 059
     Dates: start: 20200612, end: 20210520

REACTIONS (2)
  - No adverse event [Unknown]
  - Device breakage [Recovered/Resolved]
